FAERS Safety Report 7056618-3 (Version None)
Quarter: 2010Q4

REPORT INFORMATION
  Report Type: 
  Country: None (occurrence: None)
  Receive Date: 20101018
  Receipt Date: 20100924
  Transmission Date: 20110411
  Serious: Yes (Other)
  Sender: FDA-Public Use
  Company Number: 1000016830

PATIENT
  Age: 80 Year

DRUGS (1)
  1. MEMANTINE HCL [Suspect]
     Dosage: (10 MG), ORAL
     Route: 048

REACTIONS (3)
  - ABNORMAL BEHAVIOUR [None]
  - AGGRESSION [None]
  - PARADOXICAL DRUG REACTION [None]
